FAERS Safety Report 4825156-8 (Version None)
Quarter: 2005Q4

REPORT INFORMATION
  Report Type: 
  Country: None (occurrence: None)
  Receive Date: 20051109
  Receipt Date: 20051109
  Transmission Date: 20060501
  Serious: Yes (Life-Threatening)
  Sender: FDA-Public Use
  Company Number: None

PATIENT
  Age: 58 Year
  Sex: Male
  Weight: 101 kg

DRUGS (3)
  1. GATIFLOXACIN [Suspect]
     Indication: INFECTION
     Dosage: 400 MG IV DAILY
     Route: 042
     Dates: start: 20050602
  2. DM [Concomitant]
  3. GLYBURIDE [Concomitant]

REACTIONS (1)
  - HYPOGLYCAEMIA [None]
